FAERS Safety Report 10053274 (Version 2)
Quarter: 2014Q2

REPORT INFORMATION
  Report Type: Spontaneous
  Country: GB (occurrence: GB)
  Receive Date: 20140402
  Receipt Date: 20140423
  Transmission Date: 20141212
  Serious: Yes (Other)
  Sender: FDA-Public Use
  Company Number: GB-ACTAVIS-2014-05952

PATIENT
  Age: 49 Year
  Sex: Female

DRUGS (5)
  1. RITUXIMAB [Suspect]
     Indication: RHEUMATIC DISORDER
     Dosage: 1000 MG, UNKNOWN
     Route: 042
     Dates: start: 20140204, end: 20140204
  2. SODIUM CHLORIDE [Suspect]
     Indication: MEDICATION DILUTION
     Dosage: UNK
     Route: 042
     Dates: start: 20140204, end: 20140204
  3. CHLORPHENAMINE [Concomitant]
     Indication: PREMEDICATION
     Dosage: 10 MG, UNKNOWN
     Route: 042
     Dates: start: 20140204
  4. HYDROCORTISONE [Concomitant]
     Indication: PREMEDICATION
     Dosage: 100 MG, UNKNOWN
     Route: 042
     Dates: start: 20140204
  5. PARACETAMOL [Concomitant]
     Indication: PREMEDICATION
     Dosage: 1 G, UNKNOWN
     Route: 048
     Dates: start: 20140204

REACTIONS (3)
  - Headache [Recovered/Resolved with Sequelae]
  - Throat irritation [Recovered/Resolved with Sequelae]
  - Chest discomfort [Recovered/Resolved with Sequelae]
